FAERS Safety Report 17269879 (Version 1)
Quarter: 2020Q1

REPORT INFORMATION
  Report Type: Spontaneous
  Country: US (occurrence: US)
  Receive Date: 20191223
  Receipt Date: 20191223
  Transmission Date: 20200409
  Serious: Yes (Hospitalization)
  Sender: FDA-Public Use
  Company Number: None

PATIENT
  Sex: Male

DRUGS (7)
  1. AFINITOR DIS [Concomitant]
  2. LAMICTAL [Concomitant]
     Active Substance: LAMOTRIGINE
  3. SABRIL [Suspect]
     Active Substance: VIGABATRIN
     Indication: BRAIN NEOPLASM
     Route: 048
     Dates: start: 20160616
  4. IRON [Concomitant]
     Active Substance: IRON
  5. LAMOTRIGINE. [Concomitant]
     Active Substance: LAMOTRIGINE
  6. LISINOPRIL. [Concomitant]
     Active Substance: LISINOPRIL
  7. SOD FLURORIDE [Concomitant]

REACTIONS (2)
  - Product dose omission [None]
  - Seizure [None]
